FAERS Safety Report 9121100 (Version 1)
Quarter: 2013Q1

REPORT INFORMATION
  Report Type: Spontaneous
  Country: US (occurrence: US)
  Receive Date: 20130226
  Receipt Date: 20130226
  Transmission Date: 20140127
  Serious: Yes (Hospitalization)
  Sender: FDA-Public Use
  Company Number: US-PFIZER INC-2013064983

PATIENT
  Sex: 0

DRUGS (3)
  1. VANCOMYCIN HCL [Suspect]
     Indication: PYREXIA
     Dosage: UNK
     Route: 042
     Dates: start: 20130106
  2. VANCOMYCIN HCL [Suspect]
     Indication: COUGH
  3. VANCOMYCIN HCL [Suspect]
     Indication: LUNG DISORDER

REACTIONS (4)
  - Nephropathy toxic [Unknown]
  - Drug level increased [Unknown]
  - Product colour issue [Unknown]
  - Product reconstitution issue [Unknown]
